FAERS Safety Report 9420436 (Version 1)
Quarter: 2013Q3

REPORT INFORMATION
  Report Type: Spontaneous
  Country: US (occurrence: US)
  Receive Date: 20130725
  Receipt Date: 20130725
  Transmission Date: 20140515
  Serious: No
  Sender: FDA-Public Use
  Company Number: US-ABBOTT-13P-163-1056866-00

PATIENT
  Sex: Female
  Weight: 93.07 kg

DRUGS (3)
  1. SYNTHROID [Suspect]
     Indication: HYPOTHYROIDISM
     Dates: start: 201208
  2. SYNTHROID [Suspect]
     Dosage: VARIOUS DOSAGE STRENGTHS
  3. BENICAR [Concomitant]
     Indication: HYPERTENSION

REACTIONS (2)
  - Weight increased [Not Recovered/Not Resolved]
  - Blood thyroid stimulating hormone increased [Not Recovered/Not Resolved]
